FAERS Safety Report 25051536 (Version 1)
Quarter: 2025Q1

REPORT INFORMATION
  Report Type: Spontaneous
  Country: CN (occurrence: CN)
  Receive Date: 20250307
  Receipt Date: 20250307
  Transmission Date: 20250408
  Serious: Yes (Other)
  Sender: AZURITY PHARMACEUTICALS
  Company Number: CN-AZURITY PHARMACEUTICALS, INC.-AZR202502-000658

PATIENT
  Age: 66 Year
  Sex: Male

DRUGS (12)
  1. METHYLPREDNISOLONE ACETATE [Suspect]
     Active Substance: METHYLPREDNISOLONE ACETATE
     Indication: Encephalitis
     Route: 065
  2. METHYLPREDNISOLONE ACETATE [Suspect]
     Active Substance: METHYLPREDNISOLONE ACETATE
     Indication: Severe fever with thrombocytopenia syndrome
  3. HUMAN IMMUNOGLOBULIN G [Suspect]
     Active Substance: HUMAN IMMUNOGLOBULIN G
     Indication: Encephalitis
     Route: 042
  4. HUMAN IMMUNOGLOBULIN G [Suspect]
     Active Substance: HUMAN IMMUNOGLOBULIN G
     Indication: Severe fever with thrombocytopenia syndrome
  5. RIBAVIRIN [Suspect]
     Active Substance: RIBAVIRIN
     Indication: Encephalitis
     Route: 065
  6. RIBAVIRIN [Suspect]
     Active Substance: RIBAVIRIN
     Indication: Severe fever with thrombocytopenia syndrome
  7. PIPERACILLIN SODIUM\TAZOBACTAM SODIUM [Concomitant]
     Active Substance: PIPERACILLIN SODIUM\TAZOBACTAM SODIUM
     Indication: Product used for unknown indication
     Route: 065
  8. OSELTAMIVIR [Concomitant]
     Active Substance: OSELTAMIVIR
     Indication: Product used for unknown indication
     Route: 065
  9. DIGITALIS [Concomitant]
     Active Substance: DIGITALIS
     Indication: Atrial fibrillation
     Route: 065
  10. LEVOFLOXACIN [Concomitant]
     Active Substance: LEVOFLOXACIN
     Indication: Product used for unknown indication
     Route: 065
  11. METOPROLOL [Concomitant]
     Active Substance: METOPROLOL
     Indication: Atrial fibrillation
     Route: 065
  12. CEFTAZIDIME [Concomitant]
     Active Substance: CEFTAZIDIME
     Indication: Product used for unknown indication
     Route: 065

REACTIONS (5)
  - Embolic stroke [Unknown]
  - Blindness cortical [Recovering/Resolving]
  - Cerebral aspergillosis [Unknown]
  - Bronchopulmonary aspergillosis [Unknown]
  - Endocarditis [Unknown]
